FAERS Safety Report 4907679-6 (Version None)
Quarter: 2006Q1

REPORT INFORMATION
  Report Type: 
  Country: None (occurrence: None)
  Receive Date: 20060210
  Receipt Date: 20060201
  Transmission Date: 20060701
  Serious: Yes (Hospitalization)
  Sender: FDA-Public Use
  Company Number: JP-MERCK-0602USA01782

PATIENT
  Age: 48 Year
  Sex: Male

DRUGS (4)
  1. NAUZELIN [Suspect]
     Indication: DRUG USE FOR UNKNOWN INDICATION
     Route: 048
     Dates: start: 20050928, end: 20050930
  2. BERBERINE CHLORIDE [Suspect]
     Indication: DRUG USE FOR UNKNOWN INDICATION
     Route: 048
     Dates: start: 20050928, end: 20050930
  3. PEPCID RPD [Suspect]
     Indication: DRUG USE FOR UNKNOWN INDICATION
     Route: 048
     Dates: start: 20050928, end: 20050930
  4. GASTROM [Suspect]
     Indication: DRUG USE FOR UNKNOWN INDICATION
     Route: 048
     Dates: start: 20050928, end: 20050930

REACTIONS (2)
  - HYPOALBUMINAEMIA [None]
  - HYPOPROTEINAEMIA [None]
